FAERS Safety Report 7261352-0 (Version None)
Quarter: 2011Q1

REPORT INFORMATION
  Report Type: 
  Country: None (occurrence: None)
  Receive Date: 20110130
  Receipt Date: 20101009
  Transmission Date: 20110831
  Serious: No
  Sender: FDA-Public Use
  Company Number: US-ABBOTT-10P-163-0677403-00

PATIENT
  Age: 49 Year
  Sex: Female

DRUGS (4)
  1. SINIGLIDE [Concomitant]
     Indication: BLOOD CHOLESTEROL
  2. LEVOTHYROXINE SODIUM [Concomitant]
     Indication: HYPOTHYROIDISM
  3. HUMIRA [Suspect]
     Indication: CROHN'S DISEASE
     Dates: start: 20050101
  4. POTASSIUM [Concomitant]
     Indication: MINERAL SUPPLEMENTATION

REACTIONS (2)
  - COUGH [None]
  - PARANASAL SINUS HYPERSECRETION [None]
